FAERS Safety Report 9415779 (Version 2)
Quarter: 2013Q3

REPORT INFORMATION
  Report Type: Report from Study
  Country: US (occurrence: US)
  Receive Date: 20130724
  Receipt Date: 20130821
  Transmission Date: 20140515
  Serious: Yes (Death)
  Sender: FDA-Public Use
  Company Number: US-ROCHE-1252410

PATIENT
  Age: 50 Year
  Sex: Male
  Weight: 81.72 kg

DRUGS (10)
  1. ZELBORAF [Suspect]
     Indication: PRODUCT USED FOR UNKNOWN INDICATION
     Route: 065
  2. OXYCODONE [Concomitant]
     Route: 048
  3. OXYCODONE [Concomitant]
     Route: 048
  4. OXYCODONE [Concomitant]
     Route: 048
  5. POTASSIUM CHLORIDE [Concomitant]
     Route: 048
  6. METRONIDAZOLE [Concomitant]
     Route: 048
  7. LISINOPRIL [Concomitant]
     Route: 048
  8. FLUOXETINE [Concomitant]
     Route: 048
  9. ATENOLOL [Concomitant]
     Route: 048
  10. APAP [Concomitant]
     Route: 048

REACTIONS (1)
  - Disease progression [Fatal]
